FAERS Safety Report 17214716 (Version 1)
Quarter: 2019Q4

REPORT INFORMATION
  Report Type: Spontaneous
  Country: DE (occurrence: DE)
  Receive Date: 20191230
  Receipt Date: 20191230
  Transmission Date: 20200122
  Serious: Yes (Hospitalization, Other)
  Sender: FDA-Public Use
  Company Number: DE-BRISTOL-MYERS SQUIBB COMPANY-BMS-2019-122907

PATIENT
  Age: 78 Year
  Sex: Female

DRUGS (1)
  1. ELIQUIS [Suspect]
     Active Substance: APIXABAN
     Indication: DEEP VEIN THROMBOSIS
     Dosage: UNK
     Route: 065
     Dates: end: 20191128

REACTIONS (17)
  - Decreased appetite [Unknown]
  - Repetitive speech [Unknown]
  - Suicidal ideation [Unknown]
  - Anxiety [Unknown]
  - Nervousness [Unknown]
  - Nausea [Unknown]
  - Apathy [Unknown]
  - Asthenia [Unknown]
  - Dyspnoea [Unknown]
  - Crying [Unknown]
  - Dizziness [Unknown]
  - Fatigue [Unknown]
  - Memory impairment [Unknown]
  - Headache [Unknown]
  - Weight decreased [Unknown]
  - Restlessness [Unknown]
  - Disturbance in attention [Unknown]

NARRATIVE: CASE EVENT DATE: 2019
